FAERS Safety Report 20545522 (Version 1)
Quarter: 2022Q1

REPORT INFORMATION
  Report Type: Spontaneous
  Country: TR (occurrence: TR)
  Receive Date: 20220303
  Receipt Date: 20220303
  Transmission Date: 20220423
  Serious: Yes (Hospitalization, Other)
  Sender: FDA-Public Use
  Company Number: TR-NOVARTISPH-NVSC2022TR009463

PATIENT
  Age: 53 Year
  Sex: Female
  Weight: 70 kg

DRUGS (1)
  1. RIBOCICLIB [Suspect]
     Active Substance: RIBOCICLIB
     Indication: Hormone receptor positive breast cancer
     Dosage: 600 MG, QD (21/28, FOR 3 MONTHS)
     Route: 048
     Dates: start: 20210915, end: 20211231

REACTIONS (3)
  - Cornea verticillata [Unknown]
  - Corneal deposits [Unknown]
  - Vision blurred [Unknown]

NARRATIVE: CASE EVENT DATE: 20211201
